FAERS Safety Report 21411632 (Version 1)
Quarter: 2022Q4

REPORT INFORMATION
  Report Type: Spontaneous
  Country: US (occurrence: US)
  Receive Date: 20221005
  Receipt Date: 20221005
  Transmission Date: 20230113
  Serious: No
  Sender: FDA-Public Use
  Company Number: US-JUBILANT CADISTA PHARMACEUTICALS INC.-2022JUB00197

PATIENT
  Age: 69 Year
  Sex: Male
  Weight: 88.889 kg

DRUGS (8)
  1. PREDNISONE [Suspect]
     Active Substance: PREDNISONE
     Indication: Bronchial disorder
     Dosage: 40 MG, 1X/DAY
     Route: 048
     Dates: start: 20220702, end: 20220703
  2. PREDNISONE [Suspect]
     Active Substance: PREDNISONE
     Dosage: 35 MG, 1X/DAY
     Route: 048
     Dates: start: 20220704, end: 20220705
  3. PREDNISONE [Suspect]
     Active Substance: PREDNISONE
     Dosage: 30 MG, 1X/DAY
     Route: 048
     Dates: start: 20220706, end: 20220707
  4. PREDNISONE [Suspect]
     Active Substance: PREDNISONE
     Dosage: 25 MG, 1X/DAY
     Route: 048
     Dates: start: 20220708, end: 20220709
  5. UNSPECIFIED ALLERGY SHOT [Concomitant]
     Dosage: UNK, 2X/MONTH (EVERY 2 WEEKS)
  6. PULMICORT TURBUHALER [Concomitant]
     Active Substance: BUDESONIDE
  7. INCRUSE ELLIPTA [Concomitant]
     Active Substance: UMECLIDINIUM BROMIDE
  8. LEVALBUTEROL [Concomitant]
     Active Substance: LEVALBUTEROL
     Dosage: AS NEEDED

REACTIONS (4)
  - Heart rate increased [Recovered/Resolved]
  - Abdominal pain [Recovered/Resolved]
  - Urinary tract pain [Not Recovered/Not Resolved]
  - Unevaluable event [Unknown]

NARRATIVE: CASE EVENT DATE: 20220709
